FAERS Safety Report 20134080 (Version 1)
Quarter: 2021Q4

REPORT INFORMATION
  Report Type: Spontaneous
  Country: FR (occurrence: FR)
  Receive Date: 20211201
  Receipt Date: 20211201
  Transmission Date: 20220303
  Serious: Yes (Hospitalization, Other)
  Sender: FDA-Public Use
  Company Number: FR-ABBVIE-21K-056-4180344-00

PATIENT
  Age: 67 Year
  Sex: Male

DRUGS (3)
  1. VALPROATE SODIUM [Suspect]
     Active Substance: VALPROATE SODIUM
     Indication: Epilepsy
     Route: 048
  2. ALLOPURINOL [Suspect]
     Active Substance: ALLOPURINOL
     Indication: Gout
     Route: 048
  3. LOXAPINE [Suspect]
     Active Substance: LOXAPINE
     Indication: Mental disorder
     Route: 048

REACTIONS (4)
  - Bradypnoea [Unknown]
  - Coma [Unknown]
  - Miosis [Unknown]
  - Hypertonia [Unknown]

NARRATIVE: CASE EVENT DATE: 20200208
